FAERS Safety Report 4975405-0 (Version None)
Quarter: 2006Q2

REPORT INFORMATION
  Report Type: 
  Country: None (occurrence: None)
  Receive Date: 20060418
  Receipt Date: 20041222
  Transmission Date: 20061013
  Serious: Yes (Hospitalization)
  Sender: FDA-Public Use
  Company Number: US-MERCK-0412USA02832

PATIENT
  Age: 74 Year
  Sex: Male
  Weight: 91 kg

DRUGS (20)
  1. VIOXX [Suspect]
     Indication: ARTHRITIS
     Route: 048
     Dates: start: 20000501, end: 20040901
  2. ACIPHEX [Concomitant]
     Indication: DYSPEPSIA
     Route: 065
  3. AMBIEN [Concomitant]
     Indication: INSOMNIA
     Route: 065
  4. AVODART [Concomitant]
     Route: 065
  5. CARDURA [Concomitant]
     Route: 065
  6. CEPHALEXIN [Concomitant]
     Route: 065
  7. CIPRO [Concomitant]
     Route: 065
  8. COLCHICINE [Concomitant]
     Route: 065
  9. DOXAZOSIN MESYLATE [Concomitant]
     Route: 065
  10. ENDOCET [Concomitant]
     Route: 065
  11. FLOMAX (MORNIFLUMATE) [Concomitant]
     Indication: CONSTIPATION
     Route: 065
  12. FOLGARD [Concomitant]
     Route: 065
  13. NIASPAN [Concomitant]
     Indication: BLOOD CHOLESTEROL
     Route: 065
  14. NITROQUICK [Concomitant]
     Indication: CHEST PAIN
     Route: 065
  15. PERCOCET [Concomitant]
     Route: 065
  16. PHENAZOPYRIDINE HYDROCHLORIDE [Concomitant]
     Route: 065
  17. PREDNISONE [Concomitant]
     Route: 065
  18. TEMAZEPAM [Concomitant]
     Indication: INSOMNIA
     Route: 065
  19. VIAGRA [Concomitant]
     Route: 065
  20. ALEVE [Concomitant]
     Route: 065

REACTIONS (12)
  - ANGIOPATHY [None]
  - ARTERIOSCLEROSIS [None]
  - BLOOD CHOLESTEROL INCREASED [None]
  - CALCULUS URETERIC [None]
  - CARDIAC DISORDER [None]
  - CARDIOMYOPATHY [None]
  - CARDIOVASCULAR DISORDER [None]
  - CORONARY ARTERY DISEASE [None]
  - CORONARY ARTERY STENOSIS [None]
  - HYPERTENSION [None]
  - MYOCARDIAL INFARCTION [None]
  - RENAL FAILURE [None]
